FAERS Safety Report 24719653 (Version 1)
Quarter: 2024Q4

REPORT INFORMATION
  Report Type: Spontaneous
  Country: US (occurrence: US)
  Receive Date: 20241211
  Receipt Date: 20241211
  Transmission Date: 20250115
  Serious: Yes (Other)
  Sender: DAIICHI
  Company Number: US-DSJP-DS-2024-113698-US

PATIENT
  Age: 73 Year
  Sex: Female

DRUGS (4)
  1. QUIZARTINIB [Suspect]
     Active Substance: QUIZARTINIB
     Indication: Acute myeloid leukaemia
     Dosage: UNK
     Route: 065
  2. IADADEMSTAT [Suspect]
     Active Substance: IADADEMSTAT
     Indication: Acute myeloid leukaemia
     Dosage: UNK
     Route: 065
  3. GILTERITINIB [Suspect]
     Active Substance: GILTERITINIB
     Indication: Acute myeloid leukaemia
     Dosage: 120 MG
     Route: 065
  4. GILTERITINIB [Suspect]
     Active Substance: GILTERITINIB
     Dosage: 80 MG
     Route: 065

REACTIONS (2)
  - Acute febrile neutrophilic dermatosis [Recovered/Resolved]
  - Product use complaint [Unknown]
